FAERS Safety Report 8472698-2 (Version None)
Quarter: 2012Q2

REPORT INFORMATION
  Report Type: 
  Country: None (occurrence: None)
  Receive Date: 20120323
  Receipt Date: 20111206
  Transmission Date: 20120825
  Serious: Yes (Other)
  Sender: FDA-Public Use
  Company Number: 163-21880-11102991

PATIENT
  Age: 76 Year
  Sex: Male

DRUGS (4)
  1. REVLIMID [Suspect]
     Indication: MULTIPLE MYELOMA
     Dosage: 25 MG, QD X 21 DAYS, PO ; 25 MG, QD X 21 DAYS, PO ; 15 MG, FOR 21 DAYS, PO
     Route: 048
     Dates: start: 20110801
  2. REVLIMID [Suspect]
     Indication: MULTIPLE MYELOMA
     Dosage: 25 MG, QD X 21 DAYS, PO ; 25 MG, QD X 21 DAYS, PO ; 15 MG, FOR 21 DAYS, PO
     Route: 048
     Dates: start: 20110307, end: 20110418
  3. REVLIMID [Suspect]
     Indication: MULTIPLE MYELOMA
     Dosage: 25 MG, QD X 21 DAYS, PO ; 25 MG, QD X 21 DAYS, PO ; 15 MG, FOR 21 DAYS, PO
     Route: 048
     Dates: start: 20110510, end: 20110620
  4. VELCADE [Concomitant]

REACTIONS (3)
  - PLATELET COUNT DECREASED [None]
  - RASH [None]
  - NEUTROPENIA [None]
